FAERS Safety Report 14247250 (Version 2)
Quarter: 2017Q4

REPORT INFORMATION
  Report Type: Report from Study
  Country: US (occurrence: BR)
  Receive Date: 20171204
  Receipt Date: 20171206
  Transmission Date: 20180321
  Serious: Yes (Life-Threatening, Other)
  Sender: FDA-Public Use
  Company Number: US-SUNOVION-2017SUN005135

PATIENT
  Sex: Female
  Weight: 62 kg

DRUGS (6)
  1. INDACATEROL AND GLYCOPYRROLATE [Suspect]
     Active Substance: GLYCOPYRROLATE\INDACATEROL MALEATE
     Indication: INFECTIOUS PLEURAL EFFUSION
     Dosage: 1 DF (110+50 UG), QD
     Route: 055
  2. SPIRIVA [Concomitant]
     Active Substance: TIOTROPIUM BROMIDE MONOHYDRATE
  3. TELOND (UNSPECIFIED) [Suspect]
     Active Substance: UNSPECIFIED INGREDIENT
  4. CORTICOSTEROIDS [Concomitant]
     Active Substance: CORTICOSTEROID NOS
  5. FLU VACCINE VII [Concomitant]
     Active Substance: INFLUENZA VIRUS VACCINE
  6. BENEFIX [Concomitant]
     Active Substance: COAGULATION FACTOR IX RECOMBINANT HUMAN\ISOPROPYL ALCOHOL

REACTIONS (16)
  - Coronary artery disease [Unknown]
  - Blood pressure abnormal [Unknown]
  - Oxygen saturation decreased [Unknown]
  - Heart rate increased [Unknown]
  - Pneumonia [Unknown]
  - Malaise [Unknown]
  - Pain [Unknown]
  - Fear [Unknown]
  - Asthma [Unknown]
  - Dyspnoea [Unknown]
  - Pyrexia [Unknown]
  - Cardiomegaly [Unknown]
  - Apparent death [Unknown]
  - Fatigue [Unknown]
  - Pericarditis [Unknown]
  - Cardiac disorder [Unknown]
